FAERS Safety Report 5429605-6 (Version None)
Quarter: 2007Q3

REPORT INFORMATION
  Report Type: 
  Country: None (occurrence: None)
  Receive Date: 20070829
  Receipt Date: 20070817
  Transmission Date: 20080115
  Serious: Yes (Other)
  Sender: FDA-Public Use
  Company Number: IE-ELI_LILLY_AND_COMPANY-IE200708003914

PATIENT
  Age: 66 Year
  Sex: Female

DRUGS (4)
  1. BYETTA [Suspect]
     Dosage: UNK, 2/D
  2. METFORMIN [Concomitant]
  3. NU-SEALS ASPIRIN [Concomitant]
     Dosage: 75 MG, UNK
  4. ATORVASTATIN CALCIUM [Concomitant]
     Dosage: 20 MG, UNK

REACTIONS (1)
  - MYOCARDIAL ISCHAEMIA [None]
